FAERS Safety Report 13196934 (Version 1)
Quarter: 2017Q1

REPORT INFORMATION
  Report Type: Spontaneous
  Country: US (occurrence: US)
  Receive Date: 20170208
  Receipt Date: 20170208
  Transmission Date: 20170428
  Serious: Yes (Other)
  Sender: FDA-Public Use
  Company Number: US-BRISTOL-MYERS SQUIBB COMPANY-BMS-2017-010051

PATIENT
  Age: 33 Year
  Sex: Female

DRUGS (1)
  1. ORENCIA [Suspect]
     Active Substance: ABATACEPT
     Indication: RHEUMATOID ARTHRITIS
     Dosage: 750 MG, UNK
     Route: 042

REACTIONS (8)
  - Hip surgery [Unknown]
  - Drug ineffective [Unknown]
  - Fatigue [Unknown]
  - Knee operation [Unknown]
  - Limb operation [Unknown]
  - Somnolence [Unknown]
  - Shoulder operation [Unknown]
  - Infection [Unknown]

NARRATIVE: CASE EVENT DATE: 20030417
